FAERS Safety Report 12175185 (Version 3)
Quarter: 2016Q2

REPORT INFORMATION
  Report Type: Spontaneous
  Country: GB (occurrence: GB)
  Receive Date: 20160314
  Receipt Date: 20160601
  Transmission Date: 20160815
  Serious: Yes (Hospitalization)
  Sender: FDA-Public Use
  Company Number: GB-JNJFOC-20160312378

PATIENT
  Age: 69 Year
  Sex: Male

DRUGS (1)
  1. SIMPONI [Suspect]
     Active Substance: GOLIMUMAB
     Indication: PRODUCT USED FOR UNKNOWN INDICATION
     Route: 058
     Dates: end: 20160227

REACTIONS (6)
  - Hospitalisation [Unknown]
  - Hypothermia [Recovering/Resolving]
  - Aphonia [Recovering/Resolving]
  - Skin exfoliation [Unknown]
  - Lower respiratory tract infection [Recovering/Resolving]
  - Cellulitis [Recovering/Resolving]

NARRATIVE: CASE EVENT DATE: 201512
